FAERS Safety Report 7183259-X (Version None)
Quarter: 2010Q4

REPORT INFORMATION
  Report Type: 
  Country: None (occurrence: None)
  Receive Date: 20101222
  Receipt Date: 20100510
  Transmission Date: 20110411
  Serious: No
  Sender: FDA-Public Use
  Company Number: A0858940A

PATIENT
  Sex: Male

DRUGS (7)
  1. FLUTICASONE PROPIONATE [Suspect]
     Indication: RHINITIS
     Dosage: 1SPR TWICE PER DAY
     Route: 045
     Dates: start: 20091001
  2. METOPROLOL TARTRATE [Concomitant]
  3. NIFEDIPINE [Concomitant]
  4. CETIRIZINE HCL [Concomitant]
  5. SIMVASTATIN [Concomitant]
  6. OMEPRAZOLE [Concomitant]
  7. PROVENTIL [Concomitant]

REACTIONS (4)
  - APHONIA [None]
  - INCREASED UPPER AIRWAY SECRETION [None]
  - INFLUENZA LIKE ILLNESS [None]
  - NIGHT SWEATS [None]
